FAERS Safety Report 18562071 (Version 14)
Quarter: 2025Q2

REPORT INFORMATION
  Report Type: Report from Study
  Country: DE (occurrence: DE)
  Receive Date: 20201130
  Receipt Date: 20250507
  Transmission Date: 20250716
  Serious: Yes (Hospitalization, Other)
  Sender: TAKEDA
  Company Number: DE-TAKEDA-DE202029908

PATIENT
  Age: 55 Year
  Sex: Male
  Weight: 58 kg

DRUGS (26)
  1. TEDUGLUTIDE [Suspect]
     Active Substance: TEDUGLUTIDE
     Indication: Short-bowel syndrome
     Dosage: 2.65 MILLIGRAM, QD
     Dates: start: 20180306, end: 201807
  2. TEDUGLUTIDE [Suspect]
     Active Substance: TEDUGLUTIDE
     Dosage: 3 MILLIGRAM, QD
     Dates: start: 201807, end: 201811
  3. TEDUGLUTIDE [Suspect]
     Active Substance: TEDUGLUTIDE
     Dosage: 1.25 MILLIGRAM, QD
     Dates: start: 20190117, end: 20190710
  4. TEDUGLUTIDE [Suspect]
     Active Substance: TEDUGLUTIDE
     Dosage: 1.6 MILLIGRAM, QD
     Dates: start: 20190711, end: 20200204
  5. TEDUGLUTIDE [Suspect]
     Active Substance: TEDUGLUTIDE
     Dosage: 2.4 MILLIGRAM, QD
     Dates: start: 20200205, end: 202101
  6. TEDUGLUTIDE [Suspect]
     Active Substance: TEDUGLUTIDE
     Dosage: 3.2 MILLIGRAM, QD
     Dates: start: 202101, end: 202108
  7. TEDUGLUTIDE [Suspect]
     Active Substance: TEDUGLUTIDE
     Dosage: 3 MILLIGRAM, QD
     Dates: start: 202108, end: 202111
  8. TEDUGLUTIDE [Suspect]
     Active Substance: TEDUGLUTIDE
     Dosage: 3.2 MILLIGRAM, QD
     Dates: start: 202112
  9. FRUBIASE CALCIUM FORTE [Concomitant]
     Indication: Short-bowel syndrome
  10. FERMED [SACCHARATED IRON OXIDE] [Concomitant]
     Indication: Anaemia
     Dosage: 100 MILLIGRAM, 1/WEEK
     Dates: start: 20190722, end: 20190805
  11. SELENASE [SODIUM SELENATE] [Concomitant]
     Indication: Selenium deficiency
     Dosage: 0.05 MILLIGRAM, QD
     Dates: start: 201901
  12. SODIUM BICARBONATE [Concomitant]
     Active Substance: SODIUM BICARBONATE
     Indication: Chronic kidney disease
     Dosage: 273 MILLIGRAM, TID
     Dates: start: 201905, end: 201911
  13. PIPERACILLIN SODIUM\TAZOBACTAM SODIUM [Concomitant]
     Active Substance: PIPERACILLIN SODIUM\TAZOBACTAM SODIUM
     Indication: Infection
     Dosage: 4 GRAM, BID
     Dates: start: 20201026
  14. CEFUROXIME [Concomitant]
     Active Substance: CEFUROXIME
     Indication: Infection
     Dosage: 750 MILLIGRAM, TID
     Dates: start: 20201019, end: 20201023
  15. FERMED [CEFACLOR] [Concomitant]
     Indication: Anaemia
     Dosage: 100 MILLIGRAM, 1/WEEK
     Dates: start: 20190722, end: 20190805
  16. POTASSIUM CHLORIDE [Concomitant]
     Active Substance: POTASSIUM CHLORIDE
     Indication: Short-bowel syndrome
     Dosage: UNK, QD
     Dates: start: 201801
  17. Anaesthesulf [Concomitant]
     Indication: Herpes zoster
     Dosage: UNK, TID
     Dates: start: 201807, end: 201807
  18. SODIUM BICARBONATE [Concomitant]
     Active Substance: SODIUM BICARBONATE
     Dosage: 840 MILLIGRAM, QID
     Dates: end: 201904
  19. SILDENAFIL [Concomitant]
     Active Substance: SILDENAFIL
     Indication: Erectile dysfunction
  20. FEBUXOSTAT [Concomitant]
     Active Substance: FEBUXOSTAT
     Indication: Hyperuricaemia
     Dosage: 80 MILLIGRAM, QD
     Dates: start: 202111
  21. PANCRELIPASE [Concomitant]
     Active Substance: PANCRELIPASE
     Indication: Steatorrhoea
  22. OMEPRAZOLE [Concomitant]
     Active Substance: OMEPRAZOLE
     Indication: Prophylaxis
     Dosage: 40 MILLIGRAM, QD
  23. METAMIZOLE [Concomitant]
     Active Substance: METAMIZOLE
     Indication: Pain
  24. SODIUM CHLORIDE [Concomitant]
     Active Substance: SODIUM CHLORIDE
  25. TRIMIPRAMINE [Concomitant]
     Active Substance: TRIMIPRAMINE
     Dosage: 50 MILLIGRAM, QD
  26. ESCITALOPRAM [Concomitant]
     Active Substance: ESCITALOPRAM OXALATE
     Dosage: 10 MILLIGRAM, QD

REACTIONS (24)
  - Herpes zoster [Recovered/Resolved]
  - Prerenal failure [Recovered/Resolved]
  - Vascular device infection [Recovered/Resolved]
  - Nephrogenic anaemia [Recovered/Resolved]
  - Electrolyte imbalance [Recovered/Resolved]
  - Device dislocation [Recovered/Resolved]
  - Blood creatinine increased [Recovered/Resolved]
  - Anaemia [Recovered/Resolved]
  - Hypercalcaemia [Recovered/Resolved]
  - Hypervitaminosis A [Recovered/Resolved]
  - Osteopenia [Not Recovered/Not Resolved]
  - Muscle spasms [Recovered/Resolved]
  - Arthralgia [Recovered/Resolved]
  - Arthritis [Recovered/Resolved]
  - Selenium deficiency [Not Recovered/Not Resolved]
  - Medical device site scar [Recovered/Resolved]
  - Candida infection [Recovered/Resolved]
  - Vitamin A deficiency [Recovered/Resolved]
  - Hypervitaminosis [Not Recovered/Not Resolved]
  - Device breakage [Recovered/Resolved]
  - Haematoma [Recovered/Resolved]
  - Sleep disorder [Recovered/Resolved]
  - Decreased appetite [Recovered/Resolved]
  - Nasopharyngitis [Recovered/Resolved]

NARRATIVE: CASE EVENT DATE: 20180701
